FAERS Safety Report 5582557-0 (Version None)
Quarter: 2007Q4

REPORT INFORMATION
  Report Type: 
  Country: None (occurrence: None)
  Receive Date: 20071130
  Receipt Date: 20070326
  Transmission Date: 20080405
  Serious: Yes (Other)
  Sender: FDA-Public Use
  Company Number: WAES 0703USA04883

PATIENT
  Age: 62 Year
  Sex: Female
  Weight: 65.7716 kg

DRUGS (5)
  1. FOSAMAX [Suspect]
     Indication: DRUG USE FOR UNKNOWN INDICATION
     Dosage: 70 MG/WKY/PO
     Route: 048
     Dates: start: 20010101
  2. BENICAR [Concomitant]
  3. ESTRACE [Concomitant]
  4. ALCIUM [Concomitant]
  5. VITAMIN D [Concomitant]

REACTIONS (1)
  - OSTEONECROSIS [None]
